FAERS Safety Report 17232536 (Version 5)
Quarter: 2020Q2

REPORT INFORMATION
  Report Type: Report from Study
  Country: US (occurrence: US)
  Receive Date: 20200103
  Receipt Date: 20200625
  Transmission Date: 20200713
  Serious: Yes (Death, Life-Threatening, Hospitalization, Other)
  Sender: FDA-Public Use
  Company Number: US-ACTELION-A-US2016-146909

PATIENT
  Age: 57 Year
  Sex: Female

DRUGS (17)
  1. VELETRI [Suspect]
     Active Substance: EPOPROSTENOL
     Indication: PULMONARY ARTERIAL HYPERTENSION
     Dosage: 47 NG/KG, PER MIN
     Route: 042
     Dates: start: 20161015
  2. ATORVASTATIN CALCIUM. [Concomitant]
     Active Substance: ATORVASTATIN CALCIUM
     Dosage: UNK
  3. OPSUMIT [Suspect]
     Active Substance: MACITENTAN
     Indication: PULMONARY ARTERIAL HYPERTENSION
     Dosage: 10 MG, QD
     Route: 048
     Dates: start: 20150716, end: 20200205
  4. VELETRI [Suspect]
     Active Substance: EPOPROSTENOL
     Dosage: 10 NG/KG, PER MIN
     Route: 042
     Dates: start: 20161028
  5. VELETRI [Suspect]
     Active Substance: EPOPROSTENOL
     Dosage: 28 NG/KG, PER MIN
     Route: 042
  6. POTASSIUM CHLORIDE. [Concomitant]
     Active Substance: POTASSIUM CHLORIDE
     Dosage: 20 MEQ
     Dates: start: 20190404
  7. SPIRONOLACTONE. [Concomitant]
     Active Substance: SPIRONOLACTONE
  8. SILDENAFIL CITRATE. [Concomitant]
     Active Substance: SILDENAFIL CITRATE
     Indication: PULMONARY ARTERIAL HYPERTENSION
     Dosage: 20 MG, TID
     Route: 048
     Dates: start: 20150430, end: 20200205
  9. TUMS [Concomitant]
     Active Substance: CALCIUM CARBONATE
     Dosage: 1177 MG
     Dates: start: 20190530
  10. OXYGEN. [Concomitant]
     Active Substance: OXYGEN
     Indication: HYPOXIA
     Dosage: 2.5 L, 24 HOURS
     Route: 045
     Dates: start: 20151022, end: 20200205
  11. OPSUMIT [Suspect]
     Active Substance: MACITENTAN
     Dosage: 10 MG, QD
     Route: 048
     Dates: start: 20150716, end: 20200205
  12. UPTRAVI [Concomitant]
     Active Substance: SELEXIPAG
     Dosage: 1400 MCG
     Dates: start: 20180712
  13. VELETRI [Suspect]
     Active Substance: EPOPROSTENOL
     Dosage: 33 NG/KG, PER MIN
     Route: 042
  14. SLOW-MAG [Concomitant]
     Active Substance: MAGNESIUM CHLORIDE
     Dosage: 119 MG
     Dates: start: 20190530
  15. VELETRI [Suspect]
     Active Substance: EPOPROSTENOL
     Dosage: 32 NG/KG, PER MIN
     Route: 042
  16. METOLAZONE. [Concomitant]
     Active Substance: METOLAZONE
     Dosage: 1.5 MG
     Dates: start: 20190502
  17. TORSEMIDE. [Concomitant]
     Active Substance: TORSEMIDE
     Indication: OEDEMA
     Dosage: 20 MG
     Route: 048
     Dates: start: 20190502, end: 20200123

REACTIONS (44)
  - Headache [Recovered/Resolved with Sequelae]
  - Ear pain [Recovered/Resolved]
  - Decreased appetite [Recovered/Resolved with Sequelae]
  - Exercise tolerance decreased [Recovered/Resolved]
  - Cardiac failure [Recovered/Resolved with Sequelae]
  - Chest pain [Recovered/Resolved]
  - Abdominal pain upper [Recovered/Resolved with Sequelae]
  - Orthopnoea [Fatal]
  - Pulmonary arterial hypertension [Unknown]
  - Chest discomfort [Unknown]
  - Metapneumovirus infection [Unknown]
  - Constipation [Unknown]
  - Dyspnoea [Fatal]
  - Cardiogenic shock [Unknown]
  - Neck pain [Recovered/Resolved with Sequelae]
  - Nausea [Unknown]
  - Presyncope [Recovered/Resolved with Sequelae]
  - Acute right ventricular failure [Fatal]
  - Fluid overload [Fatal]
  - Productive cough [Unknown]
  - Myalgia [Not Recovered/Not Resolved]
  - Diarrhoea [Recovered/Resolved with Sequelae]
  - Pain in jaw [Not Recovered/Not Resolved]
  - Walking distance test abnormal [Recovered/Resolved]
  - Erythema [Recovered/Resolved with Sequelae]
  - Palpitations [Fatal]
  - Syncope [Fatal]
  - Weight increased [Fatal]
  - Acute respiratory failure [Unknown]
  - Supraventricular tachycardia [Recovered/Resolved with Sequelae]
  - Muscle spasms [Recovered/Resolved with Sequelae]
  - Dyspnoea exertional [Recovered/Resolved with Sequelae]
  - Frequent bowel movements [Recovered/Resolved with Sequelae]
  - Abdominal distension [Recovered/Resolved with Sequelae]
  - Peripheral swelling [Fatal]
  - Hypotension [Recovered/Resolved with Sequelae]
  - Dizziness [Unknown]
  - Hypovolaemia [Recovered/Resolved]
  - Respiratory distress [Fatal]
  - Haemorrhage [Unknown]
  - Oedema [Unknown]
  - Fatigue [Recovered/Resolved with Sequelae]
  - Weight decreased [Recovered/Resolved with Sequelae]
  - Abdominal discomfort [Unknown]

NARRATIVE: CASE EVENT DATE: 20161006
